FAERS Safety Report 4967602-5 (Version None)
Quarter: 2006Q2

REPORT INFORMATION
  Report Type: 
  Country: None (occurrence: None)
  Receive Date: 20060407
  Receipt Date: 20060407
  Transmission Date: 20061013
  Serious: Yes (Hospitalization)
  Sender: FDA-Public Use
  Company Number: None

PATIENT
  Sex: Female
  Weight: 64 kg

DRUGS (2)
  1. CYCLOPHOSPHAMIDE [Suspect]
     Indication: BREAST CANCER FEMALE
     Dosage: 1014 MG
     Dates: start: 20060202
  2. DOXORUBICIN HCL [Suspect]
     Dosage: 101 MG
     Dates: start: 20060202

REACTIONS (9)
  - BEDRIDDEN [None]
  - CHEST PAIN [None]
  - COUGH [None]
  - DYSPNOEA [None]
  - GLOSSODYNIA [None]
  - HAEMOGLOBIN DECREASED [None]
  - HEADACHE [None]
  - PULMONARY EMBOLISM [None]
  - PYREXIA [None]
